FAERS Safety Report 25381298 (Version 2)
Quarter: 2025Q2

REPORT INFORMATION
  Report Type: Other
  Country: US (occurrence: US)
  Receive Date: 20250530
  Receipt Date: 20250604
  Transmission Date: 20250716
  Serious: No
  Sender: MADRIGAL PHARMACEUTICALS
  Company Number: US-MADRIGAL PHARMACEUTICALS, INC-2025REZ5651

PATIENT

DRUGS (20)
  1. REZDIFFRA [Suspect]
     Active Substance: RESMETIROM
     Indication: Metabolic dysfunction-associated steatohepatitis
     Dosage: 80 MILLIGRAM, QD
     Route: 048
     Dates: start: 202412
  2. ATORVASTATIN CALCIUM [Interacting]
     Active Substance: ATORVASTATIN CALCIUM
     Indication: Product used for unknown indication
     Route: 065
  3. IBUPROFEN [Concomitant]
     Active Substance: IBUPROFEN
  4. IBUPROFEN [Concomitant]
     Active Substance: IBUPROFEN
  5. KETOCONAZOLE [Concomitant]
     Active Substance: KETOCONAZOLE
  6. TACROLIMUS [Concomitant]
     Active Substance: TACROLIMUS
  7. ASPIRIN [Concomitant]
     Active Substance: ASPIRIN
  8. CANDESARTAN CILEXETIL [Concomitant]
     Active Substance: CANDESARTAN CILEXETIL
  9. FLUOROURACIL [Concomitant]
     Active Substance: FLUOROURACIL
  10. VITAMIN D3 [Concomitant]
     Active Substance: CHOLECALCIFEROL
  11. DIETARY SUPPLEMENT\HERBALS\MILK THISTLE [Concomitant]
     Active Substance: MILK THISTLE
  12. FISH OIL [Concomitant]
     Active Substance: FISH OIL
  13. HYDROCHLOROTHIAZIDE [Concomitant]
     Active Substance: HYDROCHLOROTHIAZIDE
  14. GUAIFENESIN AND DEXTROMETHORPHAN [Concomitant]
     Active Substance: DEXTROMETHORPHAN\GUAIFENESIN
  15. MAGNESIUM CITRATE [Concomitant]
     Active Substance: MAGNESIUM CITRATE
  16. TADALAFIL [Concomitant]
     Active Substance: TADALAFIL
  17. FINASTERIDE [Concomitant]
     Active Substance: FINASTERIDE
  18. FAMOTIDINE [Concomitant]
     Active Substance: FAMOTIDINE
  19. CoQmax ubiquinol [Concomitant]
  20. CALCIUM\CHOLECALCIFEROL [Concomitant]
     Active Substance: CALCIUM\CHOLECALCIFEROL

REACTIONS (4)
  - Aspartate aminotransferase increased [Unknown]
  - Alanine aminotransferase increased [Unknown]
  - High density lipoprotein decreased [Unknown]
  - Drug interaction [Unknown]
